FAERS Safety Report 9324556 (Version 3)
Quarter: 2014Q1

REPORT INFORMATION
  Report Type: Spontaneous
  Country: US (occurrence: US)
  Receive Date: 20130603
  Receipt Date: 20140321
  Transmission Date: 20141002
  Serious: Yes (Hospitalization, Other)
  Sender: FDA-Public Use
  Company Number: US-B.I. PHARMACEUTICALS,INC./RIDGEFIELD-2013-BI-15157BP

PATIENT
  Age: 66 Year
  Sex: Male
  Weight: 134.72 kg

DRUGS (13)
  1. PRADAXA [Suspect]
     Indication: ATRIAL FIBRILLATION
     Dosage: 300 MG
     Route: 048
     Dates: start: 20110509, end: 201205
  2. AMLODIPINE BESYLATE [Concomitant]
     Dosage: 2.5 MG
     Route: 048
  3. CARAFATE [Concomitant]
     Route: 048
  4. CARDIZEM CD [Concomitant]
     Dosage: 180 MG
     Route: 048
  5. COZAAR [Concomitant]
     Dosage: 100 MG
     Route: 048
  6. DIGOXIN [Concomitant]
     Dosage: 250 MCG
     Route: 048
  7. LANTUS SOLOSTAR [Concomitant]
     Route: 065
  8. LASIX [Concomitant]
     Dosage: 40 MG
     Route: 048
  9. METFORMIN HCL [Concomitant]
     Dosage: 2550 MG
     Route: 048
  10. NOVOLOG [Concomitant]
     Route: 065
  11. SIMVASTATIN [Concomitant]
     Dosage: 20 MG
     Route: 065
  12. SPIRONOLACTONE [Concomitant]
     Dosage: 25 MG
     Route: 048
  13. ASPIRIN [Concomitant]
     Route: 065

REACTIONS (6)
  - Gastrointestinal haemorrhage [Unknown]
  - Anaemia [Unknown]
  - Volvulus [Unknown]
  - Nausea [Recovered/Resolved]
  - Abdominal pain [Unknown]
  - Colon cancer [Unknown]
